FAERS Safety Report 9444979 (Version 1)
Quarter: 2013Q3

REPORT INFORMATION
  Report Type: Spontaneous
  Country: AT (occurrence: AT)
  Receive Date: 20130807
  Receipt Date: 20130807
  Transmission Date: 20140515
  Serious: Yes (Life-Threatening, Hospitalization)
  Sender: FDA-Public Use
  Company Number: AT-JNJFOC-20130718426

PATIENT
  Sex: Female

DRUGS (2)
  1. XARELTO [Suspect]
     Indication: PULMONARY EMBOLISM
     Route: 048
     Dates: start: 20130612
  2. XARELTO [Suspect]
     Indication: EMBOLISM VENOUS
     Route: 048
     Dates: start: 20130612

REACTIONS (3)
  - Local swelling [Not Recovered/Not Resolved]
  - Local swelling [Not Recovered/Not Resolved]
  - Incorrect dose administered [Unknown]
